FAERS Safety Report 7102985-1 (Version None)
Quarter: 2010Q4

REPORT INFORMATION
  Report Type: 
  Country: None (occurrence: None)
  Receive Date: 20101115
  Receipt Date: 20080131
  Transmission Date: 20110411
  Serious: No
  Sender: FDA-Public Use
  Company Number: US-KINGPHARMUSA00001-K200800156

PATIENT
  Sex: Male
  Weight: 90.703 kg

DRUGS (6)
  1. ALTACE [Suspect]
     Indication: CHEST PAIN
     Dosage: 2.5 MG, QD
     Route: 048
     Dates: start: 20071107, end: 20080130
  2. ALTACE [Suspect]
     Indication: ARTERIAL DISORDER
     Dosage: 5 MG, QD
     Route: 048
     Dates: start: 20080131
  3. TOPROL-XL [Concomitant]
     Dosage: 100 MG, QD
     Route: 048
  4. ASPIRIN [Concomitant]
     Dosage: 325 MG, QD
     Route: 048
  5. PLAVIX [Concomitant]
     Dosage: 75 MG, QD
     Route: 048
  6. LIPITOR [Concomitant]
     Dosage: 80 MG, QD
     Route: 048

REACTIONS (2)
  - COUGH [None]
  - HYPERTENSION [None]
